FAERS Safety Report 5583682-0 (Version None)
Quarter: 2008Q1

REPORT INFORMATION
  Report Type: 
  Country: None (occurrence: None)
  Receive Date: 20080102
  Receipt Date: 20071220
  Transmission Date: 20080703
  Serious: Yes (Hospitalization)
  Sender: FDA-Public Use
  Company Number: 2007BI020291

PATIENT
  Sex: Female

DRUGS (1)
  1. AVONEX [Suspect]
     Indication: DRUG USE FOR UNKNOWN INDICATION
     Dosage: IM
     Route: 030
     Dates: start: 20070806, end: 20070917

REACTIONS (8)
  - FALL [None]
  - JOINT INJURY [None]
  - OEDEMA [None]
  - OEDEMA PERIPHERAL [None]
  - OSTEOARTHRITIS [None]
  - PNEUMONIA [None]
  - RIB FRACTURE [None]
  - SKELETAL INJURY [None]
